FAERS Safety Report 9196292 (Version 1)
Quarter: 2013Q1

REPORT INFORMATION
  Report Type: Report from Study
  Country: US (occurrence: US)
  Receive Date: 20130328
  Receipt Date: 20130328
  Transmission Date: 20140127
  Serious: Yes (Hospitalization, Other)
  Sender: FDA-Public Use
  Company Number: US-JNJFOC-20130314791

PATIENT
  Sex: Male
  Weight: 108.86 kg

DRUGS (8)
  1. STELARA [Suspect]
     Indication: PSORIASIS
     Route: 058
  2. LASIX [Concomitant]
     Indication: FLUID RETENTION
     Dates: start: 2012
  3. PLAVIX [Concomitant]
     Indication: CARDIOVASCULAR EVENT PROPHYLAXIS
     Dates: start: 2012
  4. CARVEDILOL [Concomitant]
     Indication: CARDIAC DISORDER
     Dates: start: 2012
  5. RAMIPRIL [Concomitant]
     Indication: BLOOD PRESSURE
     Dates: start: 2009
  6. METFORMIN [Concomitant]
     Indication: DIABETES MELLITUS
     Dates: start: 2009
  7. BACLOFEN [Concomitant]
     Indication: NEURALGIA
     Dates: start: 2009
  8. GABAPENTIN [Concomitant]
     Indication: NEURALGIA
     Dates: start: 2009

REACTIONS (4)
  - Cerebrovascular accident [Not Recovered/Not Resolved]
  - Sepsis [Recovered/Resolved]
  - Heart rate decreased [Recovered/Resolved]
  - Dyspnoea [Recovered/Resolved]
